FAERS Safety Report 11081252 (Version 1)
Quarter: 2015Q2

REPORT INFORMATION
  Report Type: Spontaneous
  Country: US (occurrence: US)
  Receive Date: 20150501
  Receipt Date: 20150501
  Transmission Date: 20150821
  Serious: No
  Sender: FDA-Public Use
  Company Number: US-ABBVIE-14P-163-1267961-00

PATIENT
  Age: 76 Year
  Sex: Female
  Weight: 79.45 kg

DRUGS (4)
  1. VITAMIN B12 [Suspect]
     Active Substance: CYANOCOBALAMIN
     Indication: PRODUCT USED FOR UNKNOWN INDICATION
     Dates: start: 20140720, end: 20140720
  2. SOMATOLINE [Concomitant]
     Active Substance: ESCIN\LEVOTHYROXINE
     Indication: HEPATIC CANCER
  3. CREON [Suspect]
     Active Substance: PANCRELIPASE AMYLASE\PANCRELIPASE LIPASE\PANCRELIPASE PROTEASE
     Indication: PANCREATIC INSUFFICIENCY
     Dosage: 2-3 CAPSULES WITH MEALS AND 1-2 CAPSULES WITH SNACKS
     Dates: start: 201406
  4. XANAX [Concomitant]
     Active Substance: ALPRAZOLAM
     Indication: PRODUCT USED FOR UNKNOWN INDICATION

REACTIONS (5)
  - Nausea [Recovered/Resolved]
  - Oral discomfort [Recovering/Resolving]
  - Hypertension [Recovering/Resolving]
  - Glossodynia [Recovering/Resolving]
  - Heart rate increased [Recovered/Resolved]

NARRATIVE: CASE EVENT DATE: 20140717
